FAERS Safety Report 6015903-4 (Version None)
Quarter: 2008Q4

REPORT INFORMATION
  Report Type: 
  Country: None (occurrence: None)
  Receive Date: 20081222
  Receipt Date: 20081215
  Transmission Date: 20090506
  Serious: Yes (Other)
  Sender: FDA-Public Use
  Company Number: B0550480A

PATIENT
  Age: 68 Year
  Sex: Male

DRUGS (1)
  1. AVANDAMET [Suspect]
     Route: 048
     Dates: start: 20050101

REACTIONS (1)
  - MICROCYTIC ANAEMIA [None]
